FAERS Safety Report 25728972 (Version 1)
Quarter: 2025Q3

REPORT INFORMATION
  Report Type: Report from Study
  Country: GB (occurrence: GB)
  Receive Date: 20250826
  Receipt Date: 20250826
  Transmission Date: 20251020
  Serious: Yes (Other)
  Sender: ABBVIE
  Company Number: GB-ABBVIE-6432312

PATIENT
  Sex: Female

DRUGS (1)
  1. HUMIRA [Suspect]
     Active Substance: ADALIMUMAB
     Indication: Psoriatic arthropathy
     Dosage: FORM STRENGTH - 40MG/0.4ML. DOSE FORM- SOLUTION FOR INJECTION PRE-FILLED PENS. 2 PRE-FILLED DISPO...
     Route: 058

REACTIONS (2)
  - Knee arthroplasty [Unknown]
  - Psoriatic arthropathy [Unknown]
